FAERS Safety Report 5393993-X (Version None)
Quarter: 2007Q3

REPORT INFORMATION
  Report Type: 
  Country: None (occurrence: None)
  Receive Date: 20070723
  Receipt Date: 20070108
  Transmission Date: 20080115
  Serious: No
  Sender: FDA-Public Use
  Company Number: A0633229A

PATIENT
  Age: 67 Year
  Sex: Male

DRUGS (5)
  1. AVANDIA [Suspect]
     Dosage: 2MG PER DAY
     Route: 048
     Dates: start: 20061201, end: 20061201
  2. METOPROLOL TARTRATE [Concomitant]
  3. DIOVAN [Concomitant]
  4. LEVOXYL [Concomitant]
  5. DOXAZOSIN MESYLATE [Concomitant]

REACTIONS (4)
  - DIARRHOEA [None]
  - HUNGER [None]
  - MICTURITION URGENCY [None]
  - SOMNOLENCE [None]
